FAERS Safety Report 4563766-6 (Version None)
Quarter: 2005Q1

REPORT INFORMATION
  Report Type: 
  Country: None (occurrence: None)
  Receive Date: 20050128
  Receipt Date: 20041215
  Transmission Date: 20050727
  Serious: Yes (Other)
  Sender: FDA-Public Use
  Company Number: DE-BRISTOL-MYERS SQUIBB COMPANY-12797650

PATIENT
  Age: 29 Year
  Sex: Female
  Weight: 68 kg

DRUGS (3)
  1. ABILIFY [Suspect]
     Indication: PSYCHOTIC DISORDER
     Route: 048
     Dates: start: 20041203, end: 20041210
  2. AKINETON [Concomitant]
     Route: 042
  3. FLUANXOL [Concomitant]
     Route: 042

REACTIONS (2)
  - ABORTION INDUCED [None]
  - PREGNANCY [None]
